FAERS Safety Report 9919908 (Version 1)
Quarter: 2014Q1

REPORT INFORMATION
  Report Type: Spontaneous
  Country: DE (occurrence: DE)
  Receive Date: 20140224
  Receipt Date: 20140224
  Transmission Date: 20141002
  Serious: Yes (Congenital Anomaly)
  Sender: FDA-Public Use
  Company Number: DE-TEVA-462452GER

PATIENT
  Age: 1 Day
  Sex: Female

DRUGS (4)
  1. VENLAFAXINE [Suspect]
     Route: 064
  2. LAMOTRIGIN [Suspect]
     Route: 064
  3. VOMEX A [Concomitant]
     Route: 064
  4. FOLSAEURE [Concomitant]
     Route: 064

REACTIONS (2)
  - Ventricular septal defect [Not Recovered/Not Resolved]
  - Atrial septal defect [Recovering/Resolving]
